FAERS Safety Report 7573069-3 (Version None)
Quarter: 2011Q2

REPORT INFORMATION
  Report Type: 
  Country: None (occurrence: None)
  Receive Date: 20110627
  Receipt Date: 20110616
  Transmission Date: 20111010
  Serious: Yes (Hospitalization)
  Sender: FDA-Public Use
  Company Number: RU-JNJFOC-20110609197

PATIENT
  Age: 27 Year
  Sex: Male

DRUGS (1)
  1. LEVOFLOXACIN [Suspect]
     Indication: URETHRITIS
     Route: 048
     Dates: start: 20110605, end: 20110605

REACTIONS (2)
  - PRODUCT COUNTERFEIT [None]
  - ANAPHYLACTIC SHOCK [None]
